FAERS Safety Report 8343311-X (Version None)
Quarter: 2012Q2

REPORT INFORMATION
  Report Type: 
  Country: None (occurrence: None)
  Receive Date: 20120508
  Receipt Date: 20120503
  Transmission Date: 20120825
  Serious: Yes (Death, Hospitalization, Other)
  Sender: FDA-Public Use
  Company Number: PHHY2012BR038062

PATIENT
  Sex: Male

DRUGS (1)
  1. ZELMAC [Suspect]

REACTIONS (7)
  - ABDOMINAL PAIN [None]
  - INGUINAL HERNIA [None]
  - PROSTATE CANCER [None]
  - CARDIO-RESPIRATORY ARREST [None]
  - AORTIC ANEURYSM [None]
  - CORONARY ARTERY DISEASE [None]
  - CARDIAC DISORDER [None]
